FAERS Safety Report 26208957 (Version 1)
Quarter: 2025Q4

REPORT INFORMATION
  Report Type: Spontaneous
  Country: US (occurrence: US)
  Receive Date: 20251229
  Receipt Date: 20251229
  Transmission Date: 20260117
  Serious: Yes (Other)
  Sender: AMGEN
  Company Number: US-AMGEN-USASP2025253503

PATIENT
  Age: 84 Year
  Sex: Male

DRUGS (5)
  1. PREDNISONE [Suspect]
     Active Substance: PREDNISONE
     Indication: Endocrine ophthalmopathy
     Dosage: 60 MILLIGRAM, QD (FOR 5 DAYS)
     Route: 065
  2. PREDNISONE [Suspect]
     Active Substance: PREDNISONE
     Dosage: 40 MILLIGRAM, QD (FOR 7 DAY)
     Route: 065
  3. PREDNISONE [Suspect]
     Active Substance: PREDNISONE
     Dosage: 80 MILLIGRAM, QD (2 WEEK COURSE)
     Route: 065
  4. TEPROTUMUMAB [Suspect]
     Active Substance: TEPROTUMUMAB
     Indication: Endocrine ophthalmopathy
     Dosage: UNK (2 COURSE)
     Route: 065
  5. TEPROTUMUMAB [Suspect]
     Active Substance: TEPROTUMUMAB
     Dosage: UNK (2 COURSE)
     Route: 065

REACTIONS (3)
  - Endocrine ophthalmopathy [Recovering/Resolving]
  - Therapy partial responder [Unknown]
  - Off label use [Unknown]
